FAERS Safety Report 6048720-X (Version None)
Quarter: 2009Q1

REPORT INFORMATION
  Report Type: 
  Country: None (occurrence: None)
  Receive Date: 20090123
  Receipt Date: 20090115
  Transmission Date: 20090719
  Serious: Yes (Hospitalization)
  Sender: FDA-Public Use
  Company Number: GB-ROCHE-608764

PATIENT
  Sex: Female

DRUGS (4)
  1. CAPECITABINE [Suspect]
     Indication: COLORECTAL CANCER
     Route: 065
     Dates: start: 20080418
  2. BEVACIZUMAB [Suspect]
     Indication: COLORECTAL CANCER
     Route: 065
     Dates: start: 20080418
  3. ORAMORPH SR [Concomitant]
  4. LANSOPRAZOLE [Concomitant]

REACTIONS (1)
  - INTESTINAL OBSTRUCTION [None]
